FAERS Safety Report 8762710 (Version 3)
Quarter: 2013Q2

REPORT INFORMATION
  Report Type: Report from Study
  Country: JP (occurrence: JP)
  Receive Date: 20120830
  Receipt Date: 20130610
  Transmission Date: 20140414
  Serious: Yes (Hospitalization)
  Sender: FDA-Public Use
  Company Number: JP-MERCK-1208JPN011852

PATIENT
  Age: 66 Year
  Sex: Male
  Weight: 62 kg

DRUGS (8)
  1. PEGINTRON [Suspect]
     Indication: CHRONIC HEPATITIS C
     Dosage: 1.5 MICROGRAM PER KILOGRAM, QW
     Route: 058
     Dates: start: 20120517, end: 20120519
  2. REBETOL [Suspect]
     Indication: CHRONIC HEPATITIS C
     Dosage: 800 MG, QD
     Route: 048
     Dates: start: 20120517, end: 20120519
  3. TELAVIC [Suspect]
     Indication: CHRONIC HEPATITIS C
     Dosage: 2250 MG, QD
     Route: 048
     Dates: start: 20120517, end: 20120519
  4. BLADDERON [Concomitant]
     Indication: BENIGN PROSTATIC HYPERPLASIA
     Dosage: 600 MG, QD
     Route: 048
  5. ADALAT CR [Concomitant]
     Indication: HYPERTENSION
     Dosage: 20 MG, QD
     Route: 048
  6. BLOPRESS [Concomitant]
     Indication: HYPERTENSION
     Dosage: 8 MG, QD
     Route: 048
  7. URIEF [Concomitant]
     Indication: BENIGN PROSTATIC HYPERPLASIA
     Dosage: 4 MG, QD
     Route: 048
  8. GASTER [Concomitant]
     Indication: GASTRITIS
     Dosage: 20 MG, QD
     Route: 048
     Dates: end: 20120612

REACTIONS (1)
  - Renal failure acute [Recovering/Resolving]
